FAERS Safety Report 9928343 (Version 2)
Quarter: 2016Q2

REPORT INFORMATION
  Report Type: Report from Study
  Country: US (occurrence: US)
  Receive Date: 20140227
  Receipt Date: 20160413
  Transmission Date: 20160815
  Serious: Yes (Hospitalization)
  Sender: FDA-Public Use
  Company Number: US-ROCHE-1329838

PATIENT
  Age: 68 Year
  Sex: Male

DRUGS (8)
  1. LUCENTIS [Suspect]
     Active Substance: RANIBIZUMAB
     Indication: MACULAR OEDEMA
  2. TETRACAINE. [Concomitant]
     Active Substance: TETRACAINE
     Route: 061
  3. VIGAMOX [Concomitant]
     Active Substance: MOXIFLOXACIN HYDROCHLORIDE
     Route: 047
  4. LUCENTIS [Suspect]
     Active Substance: RANIBIZUMAB
     Indication: RETINAL OEDEMA
  5. BETADINE [Concomitant]
     Active Substance: POVIDONE-IODINE
  6. TOBRADEX [Concomitant]
     Active Substance: DEXAMETHASONE\TOBRAMYCIN
     Route: 065
  7. LIDOCAINE. [Concomitant]
     Active Substance: LIDOCAINE
     Route: 057
  8. LUCENTIS [Suspect]
     Active Substance: RANIBIZUMAB
     Indication: DIABETIC RETINOPATHY
     Dosage: BOTH EYE
     Route: 050

REACTIONS (7)
  - Macular oedema [Unknown]
  - Visual acuity reduced [Unknown]
  - Diabetes mellitus inadequate control [Unknown]
  - Malaise [Unknown]
  - Retinal neovascularisation [Unknown]
  - Malaise [Unknown]
  - Fluid retention [Unknown]

NARRATIVE: CASE EVENT DATE: 20111013
